FAERS Safety Report 8325494-0 (Version None)
Quarter: 2012Q2

REPORT INFORMATION
  Report Type: 
  Country: None (occurrence: None)
  Receive Date: 20120501
  Receipt Date: 20100607
  Transmission Date: 20120825
  Serious: Yes (Disabling)
  Sender: FDA-Public Use
  Company Number: US-TEVA-2010002469

PATIENT
  Sex: Male
  Weight: 82.174 kg

DRUGS (2)
  1. NUVIGIL [Suspect]
     Indication: HYPERSOMNIA-BULIMIA SYNDROME
     Dosage: 75 MILLIGRAM;
     Route: 048
     Dates: start: 20100226, end: 20100226
  2. ATENOLOL [Concomitant]
     Dates: start: 20100219

REACTIONS (4)
  - INTENTIONAL DRUG MISUSE [None]
  - ANXIETY [None]
  - DEPRESSED MOOD [None]
  - TREMOR [None]
